FAERS Safety Report 19480419 (Version 3)
Quarter: 2021Q3

REPORT INFORMATION
  Report Type: Spontaneous
  Country: DE (occurrence: DE)
  Receive Date: 20210701
  Receipt Date: 20210930
  Transmission Date: 20211014
  Serious: Yes (Hospitalization, Other)
  Sender: FDA-Public Use
  Company Number: DE-BRISTOL-MYERS SQUIBB COMPANY-BMS-2021-061366

PATIENT
  Age: 55 Year
  Sex: Female

DRUGS (19)
  1. URBASON [METHYLPREDNISOLONE ACETATE] [Suspect]
     Active Substance: METHYLPREDNISOLONE ACETATE
     Dosage: 60 MILLIGRAM
     Route: 065
     Dates: start: 20210309, end: 20210310
  2. URBASON [METHYLPREDNISOLONE ACETATE] [Suspect]
     Active Substance: METHYLPREDNISOLONE ACETATE
     Dosage: 12 MILLIGRAM
     Route: 065
     Dates: start: 20210505, end: 20210509
  3. URBASON [METHYLPREDNISOLONE ACETATE] [Suspect]
     Active Substance: METHYLPREDNISOLONE ACETATE
     Dosage: 70 MILLIGRAM
     Route: 065
     Dates: start: 20210301, end: 20210308
  4. URBASON [METHYLPREDNISOLONE ACETATE] [Suspect]
     Active Substance: METHYLPREDNISOLONE ACETATE
     Dosage: 100 MILLIGRAM
     Route: 048
     Dates: start: 20210319, end: 20210405
  5. URBASON [METHYLPREDNISOLONE ACETATE] [Suspect]
     Active Substance: METHYLPREDNISOLONE ACETATE
     Dosage: 30 MILLIGRAM
     Route: 065
     Dates: start: 20210420, end: 20210424
  6. URBASON [METHYLPREDNISOLONE ACETATE] [Suspect]
     Active Substance: METHYLPREDNISOLONE ACETATE
     Indication: IMMUNE-MEDIATED ENTEROCOLITIS
     Dosage: 60 MILLIGRAM
     Route: 065
     Dates: start: 20210107, end: 20210216
  7. URBASON [METHYLPREDNISOLONE ACETATE] [Suspect]
     Active Substance: METHYLPREDNISOLONE ACETATE
     Dosage: 40 MILLIGRAM
     Route: 065
     Dates: start: 20210415, end: 20210419
  8. URBASON [METHYLPREDNISOLONE ACETATE] [Suspect]
     Active Substance: METHYLPREDNISOLONE ACETATE
     Dosage: 60 MILLIGRAM
     Route: 065
     Dates: start: 20210311
  9. URBASON [METHYLPREDNISOLONE ACETATE] [Suspect]
     Active Substance: METHYLPREDNISOLONE ACETATE
     Dosage: 8 MILLIGRAM
     Route: 065
     Dates: start: 20210510, end: 20210514
  10. NIVOLUMAB [Suspect]
     Active Substance: NIVOLUMAB
     Indication: MALIGNANT MELANOMA
     Dosage: 480 MG Q4W 5 DOSES
     Route: 065
  11. URBASON [METHYLPREDNISOLONE ACETATE] [Suspect]
     Active Substance: METHYLPREDNISOLONE ACETATE
     Dosage: 80 MILLIGRAM
     Route: 065
     Dates: start: 20210326
  12. URBASON [METHYLPREDNISOLONE ACETATE] [Suspect]
     Active Substance: METHYLPREDNISOLONE ACETATE
     Dosage: 80 MILLIGRAM
     Route: 065
     Dates: start: 20210406, end: 20210410
  13. URBASON [METHYLPREDNISOLONE ACETATE] [Suspect]
     Active Substance: METHYLPREDNISOLONE ACETATE
     Dosage: 120 MILLIGRAM ((2MG / KG BODY WEIGHT)
     Route: 042
     Dates: start: 20210311, end: 20210318
  14. URBASON [METHYLPREDNISOLONE ACETATE] [Suspect]
     Active Substance: METHYLPREDNISOLONE ACETATE
     Dosage: 20 MILLIGRAM
     Route: 065
     Dates: start: 20210425, end: 20210429
  15. URBASON [METHYLPREDNISOLONE ACETATE] [Suspect]
     Active Substance: METHYLPREDNISOLONE ACETATE
     Dosage: 16 MILLIGRAM
     Route: 065
     Dates: start: 20210430, end: 20210504
  16. URBASON [METHYLPREDNISOLONE ACETATE] [Suspect]
     Active Substance: METHYLPREDNISOLONE ACETATE
     Dosage: 80 MILLIGRAM
     Route: 065
     Dates: start: 20210301, end: 20210308
  17. URBASON [METHYLPREDNISOLONE ACETATE] [Suspect]
     Active Substance: METHYLPREDNISOLONE ACETATE
     Dosage: 60 MILLIGRAM
     Route: 065
     Dates: start: 20210411, end: 20210414
  18. URBASON [METHYLPREDNISOLONE ACETATE] [Suspect]
     Active Substance: METHYLPREDNISOLONE ACETATE
     Dosage: 4 MILLIGRAM
     Route: 065
     Dates: start: 20210515, end: 20210520
  19. URBASON [METHYLPREDNISOLONE ACETATE] [Suspect]
     Active Substance: METHYLPREDNISOLONE ACETATE
     Dosage: 2 MILLIGRAM
     Route: 065
     Dates: start: 20210521, end: 20210531

REACTIONS (4)
  - Immune-mediated enterocolitis [Unknown]
  - Glaucoma [Unknown]
  - Steroid diabetes [Unknown]
  - Cushing^s syndrome [Unknown]
